FAERS Safety Report 24294251 (Version 2)
Quarter: 2025Q3

REPORT INFORMATION
  Report Type: Spontaneous
  Country: US (occurrence: US)
  Receive Date: 20240906
  Receipt Date: 20250905
  Transmission Date: 20251021
  Serious: No
  Sender: DOMPE FARMACEUTICI
  Company Number: US-FARMAPROD-202406-2288

PATIENT
  Sex: Female

DRUGS (14)
  1. OXERVATE [Suspect]
     Active Substance: CENEGERMIN-BKBJ
     Indication: Neurotrophic keratopathy
     Route: 047
     Dates: start: 20240610
  2. OXERVATE [Suspect]
     Active Substance: CENEGERMIN-BKBJ
  3. SODIUM CHLORIDE [Concomitant]
     Active Substance: SODIUM CHLORIDE
  4. MOXIFLOXACIN [Concomitant]
     Active Substance: MOXIFLOXACIN
  5. ATROPINE SULFATE [Concomitant]
     Active Substance: ATROPINE SULFATE
  6. LATANOPROST [Concomitant]
     Active Substance: LATANOPROST
  7. BRIMONIDINE TARTRATE [Concomitant]
     Active Substance: BRIMONIDINE TARTRATE
  8. DORZOLAMIDE [Concomitant]
     Active Substance: DORZOLAMIDE
  9. ACETAMINOPHEN [Concomitant]
     Active Substance: ACETAMINOPHEN
  10. CALCIUM [Concomitant]
     Active Substance: CALCIUM
  11. RALOXIFENE HYDROCHLORIDE [Concomitant]
     Active Substance: RALOXIFENE HYDROCHLORIDE
  12. LOSARTAN POTASSIUM [Concomitant]
     Active Substance: LOSARTAN POTASSIUM
  13. HUMALOG [Concomitant]
     Active Substance: INSULIN LISPRO
  14. LUBRIFICANT EYE DROP [Concomitant]

REACTIONS (2)
  - Eye pain [Unknown]
  - Eye irritation [Unknown]
